FAERS Safety Report 22221185 (Version 1)
Quarter: 2023Q2

REPORT INFORMATION
  Report Type: Spontaneous
  Country: IN (occurrence: IN)
  Receive Date: 20230418
  Receipt Date: 20230418
  Transmission Date: 20230722
  Serious: Yes (Other)
  Sender: FDA-Public Use
  Company Number: ALC2023IN001999

PATIENT
  Age: 60 Year
  Sex: Male

DRUGS (1)
  1. NETARSUDIL [Suspect]
     Active Substance: NETARSUDIL
     Indication: Intraocular pressure decreased
     Dosage: UNK
     Route: 047

REACTIONS (1)
  - Corneal oedema [Recovered/Resolved]
